FAERS Safety Report 8130423-9 (Version None)
Quarter: 2012Q1

REPORT INFORMATION
  Report Type: 
  Country: None (occurrence: None)
  Receive Date: 20120210
  Receipt Date: 20120131
  Transmission Date: 20120608
  Serious: Yes (Death, Hospitalization)
  Sender: FDA-Public Use
  Company Number: US-RB-036205-12

PATIENT
  Age: 24 Month
  Sex: Female

DRUGS (3)
  1. SUBUTEX [Suspect]
     Indication: ACCIDENTAL EXPOSURE
     Dosage: UNKNOWN DOSE
     Route: 048
  2. CLONAZEPAM [Suspect]
     Indication: ACCIDENTAL EXPOSURE
     Dosage: UNKNOWN DOSE
     Route: 048
  3. ACETAMINOPHEN AND HYDROCODONE BITARTRATE [Suspect]
     Indication: ACCIDENTAL EXPOSURE
     Dosage: UNKNOWN DOSE
     Route: 048

REACTIONS (6)
  - APNOEA [None]
  - UNRESPONSIVE TO STIMULI [None]
  - TOXICITY TO VARIOUS AGENTS [None]
  - PNEUMONIA [None]
  - HAEMORRHAGE [None]
  - PUPIL FIXED [None]
